FAERS Safety Report 5312204-4 (Version None)
Quarter: 2007Q2

REPORT INFORMATION
  Report Type: 
  Country: None (occurrence: None)
  Receive Date: 20070430
  Receipt Date: 20060809
  Transmission Date: 20071010
  Serious: No
  Sender: FDA-Public Use
  Company Number: 2006UW15922

PATIENT
  Sex: Male

DRUGS (5)
  1. NEXIUM [Suspect]
     Indication: GASTROOESOPHAGEAL REFLUX DISEASE
     Route: 048
     Dates: start: 20030101
  2. LIPITOR [Concomitant]
  3. GLUCOSAMINE [Concomitant]
  4. CHONDROITIN [Concomitant]
  5. IRON [Concomitant]

REACTIONS (2)
  - HAEMATOCHEZIA [None]
  - STOMACH DISCOMFORT [None]
